FAERS Safety Report 10166048 (Version 2)
Quarter: 2014Q2

REPORT INFORMATION
  Report Type: Spontaneous
  Country: US (occurrence: US)
  Receive Date: 20140512
  Receipt Date: 20140611
  Transmission Date: 20141212
  Serious: Yes (Hospitalization, Other)
  Sender: FDA-Public Use
  Company Number: US-AMGEN-USASP2014033499

PATIENT
  Age: 60 Year
  Sex: Female
  Weight: 96.15 kg

DRUGS (1)
  1. ENBREL [Suspect]
     Indication: RHEUMATOID ARTHRITIS
     Dosage: 50 MG, QWK
     Route: 058
     Dates: start: 20140113, end: 20140414

REACTIONS (8)
  - Renal failure acute [Recovered/Resolved]
  - Sepsis [Recovered/Resolved]
  - Septic shock [Recovered/Resolved]
  - Cardiac failure congestive [Unknown]
  - Abdominal tenderness [Unknown]
  - Blood pressure decreased [Unknown]
  - Tachycardia [Unknown]
  - Thrombocytopenia [Recovered/Resolved]
